FAERS Safety Report 22340120 (Version 1)
Quarter: 2023Q2

REPORT INFORMATION
  Report Type: Spontaneous
  Country: FR (occurrence: FR)
  Receive Date: 20230518
  Receipt Date: 20230518
  Transmission Date: 20230722
  Serious: No
  Sender: FDA-Public Use
  Company Number: FR-JAZZ PHARMACEUTICALS-2023-FR-007123

PATIENT

DRUGS (1)
  1. XYREM [Suspect]
     Active Substance: SODIUM OXYBATE
     Indication: Product used for unknown indication

REACTIONS (3)
  - Insomnia [Unknown]
  - Nocturia [Unknown]
  - Hyperhidrosis [Recovering/Resolving]
